FAERS Safety Report 9800340 (Version 4)
Quarter: 2014Q1

REPORT INFORMATION
  Report Type: Spontaneous
  Country: CN (occurrence: CN)
  Receive Date: 20140106
  Receipt Date: 20140117
  Transmission Date: 20141002
  Serious: Yes (Hospitalization)
  Sender: FDA-Public Use
  Company Number: CN-JNJFOC-20140100964

PATIENT
  Age: 24 Month
  Sex: Female
  Weight: 15.5 kg

DRUGS (1)
  1. MOTRIN SUSPENSION [Suspect]
     Indication: PYREXIA
     Dosage: AT 10:30 PM
     Route: 048
     Dates: start: 20140102, end: 20140102

REACTIONS (4)
  - Muscle twitching [Recovered/Resolved]
  - Foaming at mouth [Recovered/Resolved]
  - Discomfort [Recovered/Resolved]
  - Drug ineffective [Unknown]
